FAERS Safety Report 6527546-4 (Version None)
Quarter: 2010Q1

REPORT INFORMATION
  Report Type: 
  Country: None (occurrence: None)
  Receive Date: 20100104
  Receipt Date: 20100104
  Transmission Date: 20100710
  Serious: Yes (Life-Threatening)
  Sender: FDA-Public Use
  Company Number: None

PATIENT
  Age: 51 Year
  Sex: Female
  Weight: 69.4 kg

DRUGS (1)
  1. CEFUROXIME [Suspect]
     Indication: OTITIS EXTERNA
     Dosage: 500 MG BID PO
     Route: 048
     Dates: start: 20091114, end: 20091117

REACTIONS (5)
  - ANGIOEDEMA [None]
  - DRUG RASH WITH EOSINOPHILIA AND SYSTEMIC SYMPTOMS [None]
  - EYE SWELLING [None]
  - SKIN OEDEMA [None]
  - URTICARIA [None]
